FAERS Safety Report 7946274 (Version 4)
Quarter: 2013Q1

REPORT INFORMATION
  Report Type: Spontaneous
  Country: US (occurrence: US)
  Receive Date: 20110516
  Receipt Date: 20130131
  Transmission Date: 20140127
  Serious: Yes (Other)
  Sender: FDA-Public Use
  Company Number: US-ASTRAZENECA-2011SE27029

PATIENT
  Age: 54 Year
  Sex: Female
  Weight: 101.6 kg

DRUGS (22)
  1. SEROQUEL [Suspect]
     Indication: OBSESSIVE-COMPULSIVE DISORDER
     Route: 048
     Dates: start: 2002
  2. SEROQUEL [Suspect]
     Indication: PAIN
     Route: 048
     Dates: start: 2002
  3. SEROQUEL [Suspect]
     Indication: SLEEP DISORDER
     Route: 048
     Dates: start: 2002
  4. SEROQUEL [Suspect]
     Indication: OBSESSIVE-COMPULSIVE DISORDER
     Route: 048
  5. SEROQUEL [Suspect]
     Indication: PAIN
     Route: 048
  6. SEROQUEL [Suspect]
     Indication: SLEEP DISORDER
     Route: 048
  7. SEROQUEL [Suspect]
     Indication: OBSESSIVE-COMPULSIVE DISORDER
     Route: 048
  8. SEROQUEL [Suspect]
     Indication: PAIN
     Route: 048
  9. SEROQUEL [Suspect]
     Indication: SLEEP DISORDER
     Route: 048
  10. SEROQUEL [Suspect]
     Indication: OBSESSIVE-COMPULSIVE DISORDER
     Route: 048
  11. SEROQUEL [Suspect]
     Indication: PAIN
     Route: 048
  12. SEROQUEL [Suspect]
     Indication: SLEEP DISORDER
     Route: 048
  13. LISINOPRIL [Suspect]
     Indication: HYPERTENSION
     Route: 048
     Dates: start: 2008
  14. METHADONE [Concomitant]
     Indication: BACK PAIN
     Dates: start: 2011
  15. METHADONE [Concomitant]
     Indication: ARTHRALGIA
     Dates: start: 2011
  16. METHADONE [Concomitant]
     Indication: MUSCULOSKELETAL PAIN
     Dates: start: 2011
  17. METHADONE [Concomitant]
     Indication: PAIN IN EXTREMITY
     Dates: start: 2011
  18. TRAMADONE [Concomitant]
     Indication: PAIN
     Dates: start: 2005
  19. CELEBREX [Concomitant]
  20. NORCO [Concomitant]
     Indication: PAIN
     Dates: start: 2001
  21. CLONAZEPAM [Concomitant]
     Indication: SLEEP DISORDER
     Dates: start: 2012
  22. CANNABIS SATIVA SUBSP. INDICA TOP [Concomitant]

REACTIONS (17)
  - Cervix carcinoma [Unknown]
  - Hyperphagia [Unknown]
  - Musculoskeletal pain [Unknown]
  - Pain in extremity [Unknown]
  - Plantar fasciitis [Unknown]
  - Bursitis [Unknown]
  - Sudden onset of sleep [Unknown]
  - Abnormal behaviour [Unknown]
  - Menopause [Unknown]
  - Malaise [Unknown]
  - Hypertension [Unknown]
  - Amnesia [Unknown]
  - Arthralgia [Unknown]
  - Weight increased [Unknown]
  - Polyarthritis [Unknown]
  - Somnambulism [Unknown]
  - Off label use [Unknown]
